FAERS Safety Report 11137789 (Version 1)
Quarter: 2015Q2

REPORT INFORMATION
  Report Type: Spontaneous
  Country: FR (occurrence: FR)
  Receive Date: 20150526
  Receipt Date: 20150526
  Transmission Date: 20150821
  Serious: Yes (Other)
  Sender: FDA-Public Use
  Company Number: FR-AUROBINDO-AUR-APL-2015-04534

PATIENT
  Age: 69 Year
  Sex: Male

DRUGS (1)
  1. FLUCONAZOLE ARROW CAPSULE, HARD 50MG [Suspect]
     Active Substance: FLUCONAZOLE
     Indication: STOMATITIS
     Dosage: 1 DF, DAILY
     Route: 048
     Dates: start: 20150223, end: 20150527

REACTIONS (3)
  - Erythema [Recovered/Resolved]
  - Pruritus [Recovered/Resolved]
  - Drug eruption [Recovered/Resolved]

NARRATIVE: CASE EVENT DATE: 20150227
